FAERS Safety Report 16769019 (Version 2)
Quarter: 2019Q3

REPORT INFORMATION
  Report Type: Spontaneous
  Country: US (occurrence: US)
  Receive Date: 20190903
  Receipt Date: 20190909
  Transmission Date: 20191005
  Serious: No
  Sender: FDA-Public Use
  Company Number: US-ARRAY-2019-06058

PATIENT

DRUGS (2)
  1. MEKTOVI [Suspect]
     Active Substance: BINIMETINIB
     Indication: CERVIX CARCINOMA
     Dosage: 45 MG, BID
     Route: 048
     Dates: start: 20190625
  2. MEKTOVI [Suspect]
     Active Substance: BINIMETINIB
     Indication: BLADDER CANCER
     Dosage: 45 MG, BID
     Route: 048
     Dates: start: 20190630

REACTIONS (4)
  - Product use in unapproved indication [Unknown]
  - Fatigue [Unknown]
  - Alopecia [Unknown]
  - Rash [Unknown]

NARRATIVE: CASE EVENT DATE: 20190630
